FAERS Safety Report 8505818-1 (Version None)
Quarter: 2012Q2

REPORT INFORMATION
  Report Type: 
  Country: None (occurrence: None)
  Receive Date: 20120629
  Receipt Date: 20110906
  Transmission Date: 20120825
  Serious: No
  Sender: FDA-Public Use
  Company Number: RU-ALCON-1186638

PATIENT
  Age: 71 Year
  Sex: Female

DRUGS (5)
  1. XALATAN [Concomitant]
  2. OPHTHALMIC [Concomitant]
  3. BETOPTIC [Suspect]
     Dosage: 1, GTT DROPS, 2, 1, DAYS
     Dates: start: 20110101, end: 20110206
  4. TRAVATAN [Suspect]
     Indication: OPEN ANGLE GLAUCOMA
     Dosage: 1, GTT DROPS, 1, 1 DAYS, OPHTHALMIC
     Route: 047
     Dates: start: 20110206
  5. LATANOPROST [Concomitant]

REACTIONS (6)
  - CORNEAL EPITHELIUM DEFECT [None]
  - CORNEAL OEDEMA [None]
  - VISUAL ACUITY REDUCED [None]
  - EYE IRRITATION [None]
  - OCULAR DISCOMFORT [None]
  - WRONG DRUG ADMINISTERED [None]
